FAERS Safety Report 21107121 (Version 1)
Quarter: 2022Q3

REPORT INFORMATION
  Report Type: Spontaneous
  Country: US (occurrence: US)
  Receive Date: 20220720
  Receipt Date: 20220720
  Transmission Date: 20221027
  Serious: Yes (Other)
  Sender: FDA-Public Use
  Company Number: US-INSUD PHARMA-2207US02841

PATIENT

DRUGS (5)
  1. ESTRASORB [Suspect]
     Active Substance: ESTRADIOL HEMIHYDRATE
     Indication: Abnormal uterine bleeding
     Dosage: 2 MILLIGRAM, 3 TIMES DAILY
     Route: 048
  2. TRI-ESTARYLLA [Suspect]
     Active Substance: ETHINYL ESTRADIOL\NORGESTIMATE
     Indication: Abnormal uterine bleeding
     Dosage: DAILY
     Route: 048
  3. ETHINYL ESTRADIOL\NORETHINDRONE ACETATE [Suspect]
     Active Substance: ETHINYL ESTRADIOL\NORETHINDRONE ACETATE
     Indication: Abnormal uterine bleeding
     Dosage: 1 MG/20 MCG/75 MG, DAILY
     Route: 048
  4. CONJUGATED ESTROGENS [Suspect]
     Active Substance: ESTROGENS, CONJUGATED
     Indication: Abnormal uterine bleeding
     Dosage: 75 MILLIGRAM
     Route: 042
  5. MEDROXYPROGESTERONE [Concomitant]
     Active Substance: MEDROXYPROGESTERONE
     Dosage: 10 MG DAILY

REACTIONS (9)
  - Vanishing bile duct syndrome [Not Recovered/Not Resolved]
  - Drug-induced liver injury [Not Recovered/Not Resolved]
  - Cholestatic liver injury [Not Recovered/Not Resolved]
  - Cholestasis [Not Recovered/Not Resolved]
  - Pruritus [Not Recovered/Not Resolved]
  - Abdominal pain [Unknown]
  - Ocular icterus [Unknown]
  - Chromaturia [Unknown]
  - Diarrhoea [Recovering/Resolving]
